FAERS Safety Report 5180003-2 (Version None)
Quarter: 2006Q4

REPORT INFORMATION
  Report Type: 
  Country: None (occurrence: None)
  Receive Date: 20061211
  Receipt Date: 20061130
  Transmission Date: 20070319
  Serious: Yes (Death)
  Sender: FDA-Public Use
  Company Number: ZONI-D-04-001-0043

PATIENT
  Age: 30 Year
  Sex: Male
  Weight: 108 kg

DRUGS (10)
  1. ZONEGRAN [Suspect]
     Indication: EPILEPSY
     Dosage: 50 MG, 1 IN 1 D; ORAL, 100 MG 1 IN 1 D, ORAL, 200 MG, 1 IN 1 D; ORAL
     Route: 048
     Dates: start: 20051107, end: 20051113
  2. ZONEGRAN [Suspect]
     Indication: GRAND MAL CONVULSION
     Dosage: 50 MG, 1 IN 1 D; ORAL, 100 MG 1 IN 1 D, ORAL, 200 MG, 1 IN 1 D; ORAL
     Route: 048
     Dates: start: 20051107, end: 20051113
  3. ZONEGRAN [Suspect]
     Indication: EPILEPSY
     Dosage: 50 MG, 1 IN 1 D; ORAL, 100 MG 1 IN 1 D, ORAL, 200 MG, 1 IN 1 D; ORAL
     Route: 048
     Dates: start: 20051114, end: 20051120
  4. ZONEGRAN [Suspect]
     Indication: GRAND MAL CONVULSION
     Dosage: 50 MG, 1 IN 1 D; ORAL, 100 MG 1 IN 1 D, ORAL, 200 MG, 1 IN 1 D; ORAL
     Route: 048
     Dates: start: 20051114, end: 20051120
  5. ZONEGRAN [Suspect]
     Indication: EPILEPSY
     Dosage: 50 MG, 1 IN 1 D; ORAL, 100 MG 1 IN 1 D, ORAL, 200 MG, 1 IN 1 D; ORAL
     Route: 048
     Dates: start: 20051121, end: 20060207
  6. ZONEGRAN [Suspect]
     Indication: GRAND MAL CONVULSION
     Dosage: 50 MG, 1 IN 1 D; ORAL, 100 MG 1 IN 1 D, ORAL, 200 MG, 1 IN 1 D; ORAL
     Route: 048
     Dates: start: 20051121, end: 20060207
  7. ZONEGRAN [Concomitant]
  8. LYRICA [Concomitant]
  9. LAMOTRIGIN DESTIN (LAMOTRIGINE) [Concomitant]
  10. CITALOPRAM HYDROBROMIDE [Concomitant]

REACTIONS (2)
  - OVERWEIGHT [None]
  - SUDDEN DEATH [None]
